FAERS Safety Report 17325546 (Version 2)
Quarter: 2020Q1

REPORT INFORMATION
  Report Type: Spontaneous
  Country: PR (occurrence: PR)
  Receive Date: 20200127
  Receipt Date: 20200203
  Transmission Date: 20200409
  Serious: Yes (Other)
  Sender: FDA-Public Use
  Company Number: PR-PFIZER INC-2020032607

PATIENT
  Age: 61 Year
  Sex: Female
  Weight: 98 kg

DRUGS (1)
  1. IBRANCE [Suspect]
     Active Substance: PALBOCICLIB
     Indication: BREAST CANCER FEMALE
     Dosage: 125 MG, CYCLIC (DAILY ON 21 DAYS AND OFF 7 DAYS)
     Route: 048
     Dates: start: 20200110

REACTIONS (5)
  - Pulmonary oedema [Unknown]
  - Productive cough [Unknown]
  - Oedema peripheral [Unknown]
  - Muscular weakness [Unknown]
  - Fatigue [Unknown]

NARRATIVE: CASE EVENT DATE: 20200120
